FAERS Safety Report 7880276-9 (Version None)
Quarter: 2011Q4

REPORT INFORMATION
  Report Type: 
  Country: None (occurrence: None)
  Receive Date: 20111101
  Receipt Date: 20111025
  Transmission Date: 20120403
  Serious: Yes (Other)
  Sender: FDA-Public Use
  Company Number: US-PFIZER INC-HQWYE927728APR03

PATIENT
  Sex: Female

DRUGS (1)
  1. PREMPRO [Suspect]
     Indication: HORMONE REPLACEMENT THERAPY
     Dosage: 1 TABLET DAILY;0.625MG/UNSPECIFIED
     Route: 048

REACTIONS (4)
  - PULMONARY EMBOLISM [None]
  - HYPERTENSION [None]
  - SKIN DISORDER [None]
  - MYOCARDIAL INFARCTION [None]
